FAERS Safety Report 10505765 (Version 1)
Quarter: 2014Q4

REPORT INFORMATION
  Report Type: Spontaneous
  Country: IT (occurrence: IT)
  Receive Date: 20141008
  Receipt Date: 20141008
  Transmission Date: 20150528
  Serious: Yes (Hospitalization)
  Sender: FDA-Public Use
  Company Number: PHHY2014IT129676

PATIENT
  Sex: Female

DRUGS (4)
  1. XANAX [Concomitant]
     Active Substance: ALPRAZOLAM
  2. MIRTAZAPINE. [Suspect]
     Active Substance: MIRTAZAPINE
     Indication: DRUG ABUSE
     Dosage: 300 MG, ONCE/SINGLE
     Route: 048
     Dates: start: 20140930, end: 20140930
  3. LYRICA [Suspect]
     Active Substance: PREGABALIN
     Indication: DRUG ABUSE
     Dosage: 10 DF, ONCE/SINGLE
     Route: 048
     Dates: start: 20140930, end: 20140930
  4. DAPAROX (PAROXETINE MESILATE) [Concomitant]
     Active Substance: PAROXETINE MESYLATE
     Dosage: 20 MG/DL, UNK

REACTIONS (3)
  - Sopor [Recovered/Resolved]
  - Drug abuse [Recovered/Resolved]
  - Tachycardia [Recovered/Resolved]

NARRATIVE: CASE EVENT DATE: 20140930
